FAERS Safety Report 10432448 (Version 2)
Quarter: 2014Q4

REPORT INFORMATION
  Report Type: Spontaneous
  Country: DE (occurrence: DE)
  Receive Date: 20140905
  Receipt Date: 20141111
  Transmission Date: 20150528
  Serious: No
  Sender: FDA-Public Use
  Company Number: DE-AMGEN-DEUSP2014067159

PATIENT
  Age: 43 Year
  Sex: Female

DRUGS (3)
  1. 5 FU [Concomitant]
     Active Substance: FLUOROURACIL
     Indication: COLORECTAL CANCER METASTATIC
     Dosage: 2000 G/M2, Q14D
     Route: 042
     Dates: start: 20131202, end: 20141021
  2. GRANISETRON [Concomitant]
     Active Substance: GRANISETRON
     Indication: NAUSEA
     Dosage: 1 MG, UNK
     Route: 042
     Dates: start: 20131202, end: 20141021
  3. VECTIBIX [Suspect]
     Active Substance: PANITUMUMAB
     Indication: COLORECTAL CANCER
     Dosage: 6 MG/KG BW, Q14D
     Route: 042
     Dates: start: 20131202, end: 20141021

REACTIONS (1)
  - Headache [Unknown]
